FAERS Safety Report 6713179-3 (Version None)
Quarter: 2010Q2

REPORT INFORMATION
  Report Type: 
  Country: None (occurrence: None)
  Receive Date: 20100506
  Receipt Date: 20100405
  Transmission Date: 20101027
  Serious: No
  Sender: FDA-Public Use
  Company Number: US-BAYER-201018880NA

PATIENT
  Age: 68 Year
  Sex: Female

DRUGS (1)
  1. MAGNEVIST [Suspect]
     Indication: NUCLEAR MAGNETIC RESONANCE IMAGING
     Dosage: TOTAL DAILY DOSE: 5 ML  UNIT DOSE: 20 ML
     Route: 042
     Dates: start: 20100401, end: 20100401

REACTIONS (1)
  - SNEEZING [None]
